FAERS Safety Report 5256556-2 (Version None)
Quarter: 2007Q1

REPORT INFORMATION
  Report Type: 
  Country: None (occurrence: None)
  Receive Date: 20061219
  Receipt Date: 20061108
  Transmission Date: 20070707
  Serious: No
  Sender: FDA-Public Use
  Company Number: 2006US002605

PATIENT
  Age: 42 Year
  Sex: Female

DRUGS (3)
  1. VESICARE [Suspect]
     Indication: POLLAKIURIA
     Dosage: 5 MG, UID/QD, ORAL
     Route: 048
     Dates: start: 20061102
  2. PROTONIX [Concomitant]
  3. LORATADINE [Concomitant]

REACTIONS (4)
  - ANXIETY [None]
  - DRUG INEFFECTIVE [None]
  - PARAESTHESIA [None]
  - PRURITUS GENERALISED [None]
